FAERS Safety Report 7361927-4 (Version None)
Quarter: 2011Q1

REPORT INFORMATION
  Report Type: 
  Country: None (occurrence: None)
  Receive Date: 20110318
  Receipt Date: 20110311
  Transmission Date: 20110831
  Serious: Yes (Death, Hospitalization)
  Sender: FDA-Public Use
  Company Number: JP-CEPHALON-2011001259

PATIENT
  Sex: Male
  Weight: 50 kg

DRUGS (8)
  1. PREDNISOLONE SODIUM SUCCINATE INJ [Concomitant]
     Dates: start: 20110126, end: 20110310
  2. FAMOTIDINE [Concomitant]
     Dates: end: 20110310
  3. SULFAMETHOXAZOLE AND TRIMETHOPRIM [Concomitant]
     Dates: end: 20110310
  4. ENTECAVIR [Concomitant]
     Dates: end: 20110310
  5. VALACYCLOVIR HCL [Concomitant]
     Dates: end: 20110310
  6. BENDAMUSTINE HCL [Suspect]
     Route: 042
     Dates: start: 20110228, end: 20110301
  7. ZOPICLONE [Concomitant]
     Dates: end: 20110310
  8. BENDAMUSTINE HCL [Suspect]
     Indication: B-CELL LYMPHOMA
     Route: 042
     Dates: start: 20110207, end: 20110208

REACTIONS (7)
  - THROMBOCYTOPENIA [None]
  - PSEUDOMEMBRANOUS COLITIS [None]
  - FEBRILE NEUTROPENIA [None]
  - NEUTROPHIL COUNT DECREASED [None]
  - B-CELL LYMPHOMA [None]
  - NEUTROPENIA [None]
  - HYPOALBUMINAEMIA [None]
